FAERS Safety Report 16318921 (Version 1)
Quarter: 2019Q2

REPORT INFORMATION
  Report Type: Spontaneous
  Country: US (occurrence: US)
  Receive Date: 20190516
  Receipt Date: 20190516
  Transmission Date: 20190711
  Serious: No
  Sender: FDA-Public Use
  Company Number: US-GALDERMA-US18034930

PATIENT
  Age: 42 Year
  Sex: Female

DRUGS (5)
  1. PROACTIV MD ADAPALENE ACNE TREATMENT [Suspect]
     Active Substance: ADAPALENE
     Indication: ROSACEA
     Dosage: 0.1%
     Route: 061
     Dates: start: 20180602, end: 20180612
  2. PROACTIV MD DAILY OIL CONTROL SPF 30 [Suspect]
     Active Substance: AVOBENZONE\OCTISALATE\OCTOCRYLENE
     Indication: ROSACEA
     Route: 061
     Dates: start: 20180602, end: 20180612
  3. PROACTIV SOLUTION BLACKHEAD DISSOLVING [Concomitant]
     Active Substance: SALICYLIC ACID
     Indication: ROSACEA
     Route: 061
     Dates: start: 20180602, end: 20180612
  4. PROACTIV DEEP CLEANSING WASH [Concomitant]
     Active Substance: SALICYLIC ACID
     Indication: ROSACEA
     Route: 061
     Dates: start: 20180602, end: 20180612
  5. PROACTIV MD DEEP CLEANSING FACE WASH [Concomitant]
     Active Substance: COSMETICS
     Indication: ROSACEA
     Route: 061
     Dates: start: 20180602, end: 20180612

REACTIONS (3)
  - Erythema [Recovered/Resolved]
  - Dermatitis [Recovering/Resolving]
  - Product use in unapproved indication [Recovered/Resolved]

NARRATIVE: CASE EVENT DATE: 20180602
